APPROVED DRUG PRODUCT: AMIODARONE HYDROCHLORIDE
Active Ingredient: AMIODARONE HYDROCHLORIDE
Strength: 200MG
Dosage Form/Route: TABLET;ORAL
Application: A075188 | Product #001
Applicant: PHARMOBEDIENT CONSULTING LLC
Approved: Feb 24, 1999 | RLD: No | RS: No | Type: DISCN